FAERS Safety Report 4567133-0 (Version None)
Quarter: 2005Q1

REPORT INFORMATION
  Report Type: 
  Country: None (occurrence: None)
  Receive Date: 20050127
  Receipt Date: 20050113
  Transmission Date: 20050727
  Serious: Yes (Other)
  Sender: FDA-Public Use
  Company Number: S05-USA-00234-01

PATIENT
  Sex: Female

DRUGS (1)
  1. LEXAPRO [Suspect]

REACTIONS (4)
  - ACCOMMODATION DISORDER [None]
  - EYE DISORDER [None]
  - EYE HAEMORRHAGE [None]
  - MACULOPATHY [None]
